FAERS Safety Report 4280322-8 (Version None)
Quarter: 2004Q1

REPORT INFORMATION
  Report Type: 
  Country: None (occurrence: None)
  Receive Date: 20040126
  Receipt Date: 20040113
  Transmission Date: 20041129
  Serious: Yes (Other)
  Sender: FDA-Public Use
  Company Number: 2002050043

PATIENT
  Sex: Female

DRUGS (4)
  1. NEURONTIN [Suspect]
     Indication: CONVULSION
     Dosage: (TWICE DAILY), ORAL
     Route: 048
     Dates: start: 20000101
  2. LAMOTRIGINE [Suspect]
     Indication: CONVULSION
     Dosage: ORAL
     Route: 048
  3. CLONAZEPAM [Suspect]
     Indication: ILL-DEFINED DISORDER
  4. NIFEDIPINE [Concomitant]

REACTIONS (22)
  - ABDOMINAL DISTENSION [None]
  - ADRENAL ADENOMA [None]
  - BLOOD ARSENIC INCREASED [None]
  - BLOOD MERCURY [None]
  - CATARACT [None]
  - CREATININE URINE DECREASED [None]
  - DRUG INEFFECTIVE [None]
  - DRY MOUTH [None]
  - DYSKINESIA [None]
  - DYSPNOEA [None]
  - EATING DISORDER [None]
  - GLAUCOMA [None]
  - HELICOBACTER INFECTION [None]
  - HUNGER [None]
  - MICTURITION DISORDER [None]
  - NAUSEA [None]
  - PHARMACEUTICAL PRODUCT COMPLAINT [None]
  - POLLAKIURIA [None]
  - SENSATION OF PRESSURE [None]
  - TREATMENT NONCOMPLIANCE [None]
  - WEIGHT DECREASED [None]
  - WEIGHT INCREASED [None]
